FAERS Safety Report 4334309-7 (Version None)
Quarter: 2004Q2

REPORT INFORMATION
  Report Type: 
  Country: None (occurrence: None)
  Receive Date: 20040405
  Receipt Date: 20040319
  Transmission Date: 20050107
  Serious: Yes (Other)
  Sender: FDA-Public Use
  Company Number: A0503723A

PATIENT
  Age: 57 Year
  Sex: Female
  Weight: 97.1151 kg

DRUGS (13)
  1. COMMIT [Suspect]
     Indication: EX-SMOKER
     Dosage: 4 MG / SIXTEEN TIMES PER DAY / TRA
     Dates: start: 20030501
  2. COMMIT [Suspect]
     Dosage: 2 MG / SIXTEEN TIMES PER DAY / TRA
     Dates: start: 20030501
  3. THYROXINE SODIUM [Concomitant]
  4. VALSARTAN [Concomitant]
  5. LANSOPRAZOLE [Concomitant]
  6. SIMVASTATIN [Concomitant]
  7. PREDNISONE [Concomitant]
  8. TIMOLOL MALEATE [Concomitant]
  9. ZIPRASIDONE HCL [Concomitant]
  10. PERPHENAZINE [Concomitant]
  11. ZOLPIDEM TARTRATE [Concomitant]
  12. COMBIVENT [Concomitant]
  13. FLUNISOLIDE [Concomitant]

REACTIONS (6)
  - EMPHYSEMA [None]
  - FEAR [None]
  - INCREASED APPETITE [None]
  - NICOTINE DEPENDENCE [None]
  - TOOTH DISCOLOURATION [None]
  - WEIGHT INCREASED [None]
